FAERS Safety Report 5958970-6 (Version None)
Quarter: 2009Q1

REPORT INFORMATION
  Report Type: 
  Country: None (occurrence: None)
  Receive Date: 20081117
  Receipt Date: 20081031
  Transmission Date: 20090719
  Serious: Yes (Hospitalization, Other)
  Sender: FDA-Public Use
  Company Number: 2008ST000243

PATIENT
  Age: 81 Year
  Sex: Male

DRUGS (9)
  1. ZEGERID [Suspect]
  2. ISOSORBIDE MONONITRATE [Concomitant]
  3. ATENOLOL [Concomitant]
  4. ATORVASTATIN CALCIUM [Concomitant]
  5. LISINOPRIL [Concomitant]
  6. QUININE [Suspect]
  7. AMLODIPINE [Concomitant]
  8. OLMESARTAN [Concomitant]
  9. ASPIRIN [Concomitant]

REACTIONS (9)
  - ATRIAL FLUTTER [None]
  - BLOOD PARATHYROID HORMONE ABNORMAL [None]
  - BRADYCARDIA [None]
  - FALL [None]
  - HYPOCALCAEMIA [None]
  - HYPOKALAEMIA [None]
  - HYPOMAGNESAEMIA [None]
  - HYPOTENSION [None]
  - URINARY TRACT INFECTION [None]
